FAERS Safety Report 7110264-1 (Version None)
Quarter: 2010Q4

REPORT INFORMATION
  Report Type: 
  Country: None (occurrence: None)
  Receive Date: 20101112
  Receipt Date: 20101027
  Transmission Date: 20110411
  Serious: Yes (Hospitalization)
  Sender: FDA-Public Use
  Company Number: 1-17293816

PATIENT
  Age: 55 Year
  Sex: Female
  Weight: 111.1313 kg

DRUGS (7)
  1. QUALAQUIN [Suspect]
     Indication: MUSCLE SPASMS
     Dosage: AS NEEDED, ORAL
     Route: 048
     Dates: start: 20060119
  2. NAPROSYN [Concomitant]
  3. CHLORPHENIRAMINE [Concomitant]
  4. SYNTHROID [Concomitant]
  5. PRILOSEC (OMEPRAZOLE) [Concomitant]
  6. ATENOLOL [Concomitant]
  7. CLONIDINE [Concomitant]

REACTIONS (12)
  - ABDOMINAL PAIN [None]
  - COAGULOPATHY [None]
  - DRUG HYPERSENSITIVITY [None]
  - EPISTAXIS [None]
  - HAEMODIALYSIS [None]
  - HAEMOLYTIC URAEMIC SYNDROME [None]
  - HAEMORRHAGE [None]
  - PAIN [None]
  - PARAESTHESIA [None]
  - RENAL FAILURE ACUTE [None]
  - THROMBOTIC THROMBOCYTOPENIC PURPURA [None]
  - UNEVALUABLE EVENT [None]
